FAERS Safety Report 4348676-1 (Version None)
Quarter: 2004Q2

REPORT INFORMATION
  Report Type: 
  Country: None (occurrence: None)
  Receive Date: 20040423
  Receipt Date: 20040416
  Transmission Date: 20050107
  Serious: Yes (Hospitalization)
  Sender: FDA-Public Use
  Company Number: 200411193GDS

PATIENT
  Age: 71 Year
  Sex: Female

DRUGS (2)
  1. ASPIRINETTA (ACETYLSALICYLIC ACID) [Suspect]
     Indication: AORTIC CALCIFICATION
     Dosage: 100 MG, QD, ORAL
     Route: 048
     Dates: start: 20040315, end: 20040404
  2. ASPIRINETTA (ACETYLSALICYLIC ACID) [Suspect]
     Indication: PROPHYLAXIS
     Dosage: 100 MG, QD, ORAL
     Route: 048
     Dates: start: 20040315, end: 20040404

REACTIONS (4)
  - ACUTE MYOCARDIAL INFARCTION [None]
  - ANAEMIA [None]
  - GASTROINTESTINAL HAEMORRHAGE [None]
  - HAEMATOCHEZIA [None]
